FAERS Safety Report 17836159 (Version 1)
Quarter: 2020Q2

REPORT INFORMATION
  Report Type: Spontaneous
  Country: CA (occurrence: CA)
  Receive Date: 20200528
  Receipt Date: 20200528
  Transmission Date: 20200714
  Serious: Yes (Hospitalization)
  Sender: FDA-Public Use
  Company Number: CA-TEVA-2020-CA-1240323

PATIENT
  Age: 71 Year
  Sex: Male

DRUGS (8)
  1. CODEINE [Concomitant]
     Active Substance: CODEINE
  2. SENNA ALEXANDRINA [Concomitant]
     Active Substance: SENNA LEAF
  3. FRAGMIN [Concomitant]
     Active Substance: DALTEPARIN SODIUM
  4. NYSTATIN. [Concomitant]
     Active Substance: NYSTATIN
  5. AMLODIPINE [Concomitant]
     Active Substance: AMLODIPINE BESYLATE
  6. ACETAMINOPHEN. [Concomitant]
     Active Substance: ACETAMINOPHEN
  7. DOCETAXEL. [Suspect]
     Active Substance: DOCETAXEL
     Indication: PRODUCT USED FOR UNKNOWN INDICATION
     Route: 051
  8. METFORMIN [Concomitant]
     Active Substance: METFORMIN HYDROCHLORIDE

REACTIONS (7)
  - Blood sodium decreased [Unknown]
  - Dizziness [Unknown]
  - Hypovolaemia [Unknown]
  - Blood calcium decreased [Unknown]
  - Platelet count decreased [Unknown]
  - Haemoglobin decreased [Unknown]
  - Red cell distribution width increased [Unknown]
